FAERS Safety Report 26019120 (Version 1)
Quarter: 2025Q4

REPORT INFORMATION
  Report Type: Spontaneous
  Country: US (occurrence: US)
  Receive Date: 20251110
  Receipt Date: 20251110
  Transmission Date: 20260118
  Serious: No
  Sender: ABBVIE
  Company Number: US-ABBVIE-6538237

PATIENT

DRUGS (1)
  1. SKYRIZI [Suspect]
     Active Substance: RISANKIZUMAB-RZAA
     Indication: Product used for unknown indication
     Route: 058

REACTIONS (5)
  - Pruritus [Not Recovered/Not Resolved]
  - Rash [Unknown]
  - Urinary tract infection [Unknown]
  - Scar [Unknown]
  - Vertigo [Not Recovered/Not Resolved]
